FAERS Safety Report 9031970 (Version 1)
Quarter: 2013Q1

REPORT INFORMATION
  Report Type: Spontaneous
  Country: US (occurrence: US)
  Receive Date: 20130125
  Receipt Date: 20130125
  Transmission Date: 20140127
  Serious: Yes (Other)
  Sender: FDA-Public Use
  Company Number: US-AMGEN-USASP2013004431

PATIENT
  Sex: Female

DRUGS (3)
  1. PROLIA [Suspect]
     Indication: OSTEOPOROSIS POSTMENOPAUSAL
     Dosage: UNK UNK, Q6MO
  2. DIOVAN [Concomitant]
     Dosage: UNK
  3. CALCIUM [Concomitant]
     Dosage: 600 MG, QD

REACTIONS (9)
  - Hypertension [Unknown]
  - Hyponatraemia [Unknown]
  - Mental impairment [Unknown]
  - Feeling abnormal [Unknown]
  - Joint swelling [Unknown]
  - Weight increased [Unknown]
  - Osteopenia [Unknown]
  - Bone density abnormal [Unknown]
  - Local swelling [Unknown]
